FAERS Safety Report 23075771 (Version 1)
Quarter: 2023Q4

REPORT INFORMATION
  Report Type: Spontaneous
  Country: IR (occurrence: IR)
  Receive Date: 20231017
  Receipt Date: 20231017
  Transmission Date: 20240109
  Serious: Yes (Life-Threatening, Hospitalization, Other)
  Sender: FDA-Public Use
  Company Number: IR-MLMSERVICE-20231005-4586777-1

PATIENT
  Age: 20 Year
  Sex: Female
  Weight: 60 kg

DRUGS (1)
  1. ACETAMINOPHEN [Suspect]
     Active Substance: ACETAMINOPHEN
     Indication: Product used for unknown indication
     Dosage: 30 G, SINGLE
     Route: 048

REACTIONS (9)
  - Acute hepatic failure [Recovered/Resolved]
  - Coma [Recovered/Resolved]
  - Drug-induced liver injury [Recovered/Resolved]
  - Agitation [Recovered/Resolved]
  - Hepatic encephalopathy [Recovered/Resolved]
  - Hyperammonaemia [Recovered/Resolved]
  - Pneumonia aspiration [Unknown]
  - Overdose [Recovered/Resolved]
  - Oedema peripheral [Recovered/Resolved]
